FAERS Safety Report 8550388-5 (Version None)
Quarter: 2012Q3

REPORT INFORMATION
  Report Type: 
  Country: None (occurrence: None)
  Receive Date: 20120718
  Receipt Date: 20120630
  Transmission Date: 20120928
  Serious: Yes (Hospitalization, Other)
  Sender: FDA-Public Use
  Company Number: CIP11002926

PATIENT
  Age: 63 Year
  Sex: Female
  Weight: 75.9 kg

DRUGS (21)
  1. ACIPHEX [Concomitant]
  2. BONIVA [Suspect]
     Indication: OSTEOPOROSIS
     Dosage: 150 MG MONTHLY, ORAL
     Route: 048
     Dates: start: 20100204, end: 20110701
  3. FIORINAL /00090401/ (ACETYLSALICYLIC ACID, BUTALBITAL, CAFFEINE, PHENA [Concomitant]
  4. ACTONEL [Suspect]
     Indication: OSTEOPOROSIS
     Dosage: 35 MG ONCE WEEKLY, ORAL
     Route: 048
     Dates: start: 20041111, end: 20081116
  5. ZOLOFT [Concomitant]
  6. COMBIVENT [Concomitant]
  7. CALCIUM CARBONATE [Concomitant]
  8. VITAMIN D [Concomitant]
  9. FLONASE [Concomitant]
  10. CLONAZEPAM [Concomitant]
  11. ROBAXIN [Concomitant]
  12. ACTONEL [Suspect]
     Dosage: 75 MG 2 CONSECUTIVE DAYS MONTHLY
     Dates: start: 20090805
  13. FLAXSEED OIL (LINUM USITATISSIMUM SEED OIL) [Concomitant]
  14. MULTIVITAMIN /00831701/ (VITAMINS NOS) [Concomitant]
  15. MAGNESIUM HYDROXIDE TAB [Concomitant]
  16. ASPIRIN [Concomitant]
  17. CYMBALTA [Concomitant]
  18. POTASSIUM GLUCONATE TAB [Concomitant]
  19. FISH OIL (FISH OIL) [Concomitant]
  20. NICOTROL [Concomitant]
  21. HYDROCHLOROTHIAZIDE [Concomitant]

REACTIONS (6)
  - FRACTURE NONUNION [None]
  - STRESS FRACTURE [None]
  - FEMUR FRACTURE [None]
  - PATHOLOGICAL FRACTURE [None]
  - PAIN IN EXTREMITY [None]
  - BURSITIS [None]
